FAERS Safety Report 17486569 (Version 1)
Quarter: 2020Q1

REPORT INFORMATION
  Report Type: Spontaneous
  Country: NL (occurrence: NL)
  Receive Date: 20200303
  Receipt Date: 20200303
  Transmission Date: 20200409
  Serious: Yes (Other)
  Sender: FDA-Public Use
  Company Number: NL-ROCHE-2561343

PATIENT
  Sex: Female
  Weight: 70 kg

DRUGS (2)
  1. CLONAZEPAM. [Suspect]
     Active Substance: CLONAZEPAM
     Indication: TRIGEMINAL NEURALGIA
     Route: 065
     Dates: start: 20200213, end: 20200214
  2. CARBAMAZEPINE. [Concomitant]
     Active Substance: CARBAMAZEPINE
     Dosage: TABLET MET GEREGULEERDE AFGIFTE, 200 MG (MILLIGRAM)
     Route: 065

REACTIONS (2)
  - Off label use [Unknown]
  - Angioedema [Recovering/Resolving]
